FAERS Safety Report 7378651-4 (Version None)
Quarter: 2011Q1

REPORT INFORMATION
  Report Type: 
  Country: None (occurrence: None)
  Receive Date: 20110328
  Receipt Date: 20110317
  Transmission Date: 20110831
  Serious: Yes (Other)
  Sender: FDA-Public Use
  Company Number: BR-PFIZER INC-2011059776

PATIENT
  Age: 53 Year
  Sex: Female
  Weight: 73 kg

DRUGS (1)
  1. PRISTIQ [Suspect]
     Indication: ANXIETY
     Dosage: 50 MG, 1X/DAY (1 TABLET DAILY)
     Route: 048
     Dates: start: 20100101

REACTIONS (3)
  - SWELLING [None]
  - HYPOTHYROIDISM [None]
  - MEDICATION RESIDUE [None]
